FAERS Safety Report 6731176-9 (Version None)
Quarter: 2010Q2

REPORT INFORMATION
  Report Type: 
  Country: None (occurrence: None)
  Receive Date: 20100518
  Receipt Date: 20100505
  Transmission Date: 20101027
  Serious: Yes (Hospitalization)
  Sender: FDA-Public Use
  Company Number: DE-GENENTECH-300529

PATIENT

DRUGS (16)
  1. RITUXIMAB [Suspect]
     Indication: HODGKIN'S DISEASE
     Dosage: 375 MG/M2, UNK
     Route: 042
  2. RITUXIMAB [Suspect]
     Dosage: 375 MG/M2, UNK
     Route: 042
     Dates: start: 20100426, end: 20100426
  3. ADRIAMYCIN PFS [Suspect]
     Indication: HODGKIN'S DISEASE
     Dosage: 35 MG/M2, UNK
     Route: 065
  4. ADRIAMYCIN PFS [Suspect]
     Dosage: 35 MG/M2, UNK
     Route: 065
     Dates: start: 20100426, end: 20100426
  5. BLEOMYCIN [Suspect]
     Indication: HODGKIN'S DISEASE
     Dosage: 10 MG/M2, UNK
     Route: 065
  6. BLEOMYCIN [Suspect]
     Dosage: 10 MG/M2, UNK
     Route: 065
     Dates: start: 20100503, end: 20100503
  7. PROCARBAZIN [Suspect]
     Indication: HODGKIN'S DISEASE
     Dosage: 100 MG/M2, UNK
     Route: 065
  8. PROCARBAZIN [Suspect]
     Dosage: 100 MG/M2, UNK
     Route: 065
     Dates: start: 20100426, end: 20100502
  9. VINCRISTINE [Suspect]
     Indication: HODGKIN'S DISEASE
     Dosage: 2 MG/M2, UNK
     Route: 065
  10. VINCRISTINE [Suspect]
     Dosage: 2 MG, UNK
     Route: 065
     Dates: start: 20100503, end: 20100503
  11. ETOPOSIDE [Suspect]
     Indication: HODGKIN'S DISEASE
     Dosage: 200 MG/M2, UNK
     Route: 065
  12. ETOPOSIDE [Suspect]
     Dosage: 200 MG/M2, UNK
     Route: 065
     Dates: start: 20100426, end: 20100428
  13. CYCLOPHOSPHAMIDE [Suspect]
     Indication: HODGKIN'S DISEASE
     Dosage: 1250 MG/M2, UNK
     Route: 065
  14. CYCLOPHOSPHAMIDE [Suspect]
     Dosage: UNK
     Route: 065
     Dates: start: 20100426, end: 20100426
  15. PREDSONE [Suspect]
     Indication: HODGKIN'S DISEASE
     Dosage: 40 MG/M2, UNK
     Route: 065
  16. PREDSONE [Suspect]
     Dosage: UNK
     Route: 065
     Dates: start: 20100426, end: 20100503

REACTIONS (4)
  - ABDOMINAL PAIN UPPER [None]
  - ANAEMIA [None]
  - DYSPNOEA EXERTIONAL [None]
  - GENERAL PHYSICAL HEALTH DETERIORATION [None]
